APPROVED DRUG PRODUCT: DAPSONE
Active Ingredient: DAPSONE
Strength: 5%
Dosage Form/Route: GEL;TOPICAL
Application: A210178 | Product #001 | TE Code: AB
Applicant: COSETTE PHARMACEUTICALS INC
Approved: Mar 31, 2022 | RLD: No | RS: No | Type: RX